FAERS Safety Report 8793965 (Version 1)
Quarter: 2012Q4

REPORT INFORMATION
  Report Type: 
  Country: IE (occurrence: IE)
  Receive Date: 20120917
  Receipt Date: 20120917
  Transmission Date: 20130627
  Serious: Yes (Other)
  Sender: FDA-Public Use
  Company Number: PHFR2012IE004959

PATIENT
  Age: 35 Year
  Sex: Male

DRUGS (1)
  1. CLOZARIL [Suspect]
     Indication: SCHIZOPHRENIA
     Dosage: 400 mg, UNK
     Route: 048
     Dates: start: 20120424

REACTIONS (2)
  - Fall [Unknown]
  - Alcohol poisoning [Unknown]
